FAERS Safety Report 22249196 (Version 1)
Quarter: 2023Q2

REPORT INFORMATION
  Report Type: Spontaneous
  Country: NL (occurrence: NL)
  Receive Date: 20230425
  Receipt Date: 20230425
  Transmission Date: 20230722
  Serious: Yes (Other)
  Sender: FDA-Public Use
  Company Number: None

PATIENT
  Sex: Male
  Weight: 85 kg

DRUGS (1)
  1. APIXABAN [Suspect]
     Active Substance: APIXABAN
     Indication: Deep vein thrombosis
     Dosage: STRENGTH: 5 MG, FIRST WEEK 2DD2, THEN 2DD1
     Dates: start: 20221012, end: 20221022

REACTIONS (1)
  - Cutaneous vasculitis [Recovered/Resolved]
